FAERS Safety Report 11321598 (Version 2)
Quarter: 2015Q4

REPORT INFORMATION
  Report Type: Spontaneous
  Country: US (occurrence: US)
  Receive Date: 20150729
  Receipt Date: 20151124
  Transmission Date: 20160304
  Serious: Yes (Other)
  Sender: FDA-Public Use
  Company Number: US-ENDO PHARMACEUTICALS INC.-2015-002054

PATIENT
  Age: 57 Year
  Sex: Male

DRUGS (1)
  1. XIAFLEX [Suspect]
     Active Substance: COLLAGENASE CLOSTRIDIUM HISTOLYTICUM
     Indication: PEYRONIE^S DISEASE
     Route: 065
     Dates: start: 20150720

REACTIONS (5)
  - Penile swelling [Unknown]
  - Penile haematoma [Unknown]
  - Penile exfoliation [Unknown]
  - Penis injury [Unknown]
  - Penile haemorrhage [Unknown]

NARRATIVE: CASE EVENT DATE: 201507
